FAERS Safety Report 4930036-3 (Version None)
Quarter: 2006Q1

REPORT INFORMATION
  Report Type: 
  Country: None (occurrence: None)
  Receive Date: 20060302
  Receipt Date: 20051208
  Transmission Date: 20060701
  Serious: Yes (Death, Hospitalization, Other)
  Sender: FDA-Public Use
  Company Number: PHEH2005US13534

PATIENT
  Age: 70 Year
  Sex: Female
  Weight: 45.623 kg

DRUGS (5)
  1. AREDIA [Suspect]
  2. FEMARA [Suspect]
     Dosage: 2.5 MG, QD
     Dates: end: 20051013
  3. DOXORUBICIN HCL [Suspect]
     Indication: BREAST CANCER METASTATIC
     Dosage: 56.44 MG, ONCE/SINGLE
     Dates: start: 20051123, end: 20051123
  4. SPIRONOLACTONE [Concomitant]
  5. PROPOXYPHENE HCL AND ACETAMINOPHEN [Concomitant]

REACTIONS (20)
  - ASTHENIA [None]
  - BLOOD ALKALINE PHOSPHATASE INCREASED [None]
  - BLOOD CREATININE INCREASED [None]
  - BLOOD PRESSURE INCREASED [None]
  - BLOOD UREA INCREASED [None]
  - DYSPNOEA [None]
  - FLUID RETENTION [None]
  - FUNGAL INFECTION [None]
  - GENERAL PHYSICAL HEALTH DETERIORATION [None]
  - HEART RATE INCREASED [None]
  - MALIGNANT NEOPLASM PROGRESSION [None]
  - NEPHROTIC SYNDROME [None]
  - OEDEMA [None]
  - OEDEMA PERIPHERAL [None]
  - ORTHOPNOEA [None]
  - PLATELET COUNT ABNORMAL [None]
  - PROTEINURIA [None]
  - SKIN NECROSIS [None]
  - SKIN ODOUR ABNORMAL [None]
  - WHITE BLOOD CELL COUNT INCREASED [None]
